FAERS Safety Report 11156247 (Version 1)
Quarter: 2015Q2

REPORT INFORMATION
  Report Type: Spontaneous
  Country: US (occurrence: None)
  Receive Date: 20150601
  Receipt Date: 20150601
  Transmission Date: 20150821
  Serious: No
  Sender: FDA-Public Use
  Company Number: None

PATIENT
  Age: 90 Year
  Sex: Male
  Weight: 73.8 kg

DRUGS (1)
  1. APIXABAN [Suspect]
     Active Substance: APIXABAN
     Indication: ATRIAL FLUTTER
     Route: 048
     Dates: start: 20150507, end: 20150526

REACTIONS (7)
  - Fall [None]
  - Pain [None]
  - Musculoskeletal pain [None]
  - Haemorrhage [None]
  - Ecchymosis [None]
  - Chronic obstructive pulmonary disease [None]
  - Product use issue [None]

NARRATIVE: CASE EVENT DATE: 20150526
